FAERS Safety Report 13259239 (Version 1)
Quarter: 2017Q1

REPORT INFORMATION
  Report Type: Spontaneous
  Country: US (occurrence: US)
  Receive Date: 20170222
  Receipt Date: 20170222
  Transmission Date: 20170428
  Serious: No
  Sender: FDA-Public Use
  Company Number: US-VALIDUS PHARMACEUTICALS LLC-US-2016VAL000719

PATIENT

DRUGS (1)
  1. LASIX [Suspect]
     Active Substance: FUROSEMIDE
     Indication: OEDEMA
     Dosage: UNK
     Dates: start: 200705

REACTIONS (5)
  - Swelling [Unknown]
  - Arthralgia [Unknown]
  - Abdominal distension [Unknown]
  - Condition aggravated [Unknown]
  - Weight loss poor [Unknown]
